FAERS Safety Report 12847429 (Version 2)
Quarter: 2017Q1

REPORT INFORMATION
  Report Type: Spontaneous
  Country: JP (occurrence: JP)
  Receive Date: 20161014
  Receipt Date: 20170310
  Transmission Date: 20170428
  Serious: Yes (Other)
  Sender: FDA-Public Use
  Company Number: JP-PFIZER INC-2016476154

PATIENT
  Age: 86 Year
  Sex: Male

DRUGS (3)
  1. COSOPT [Suspect]
     Active Substance: DORZOLAMIDE HYDROCHLORIDE\TIMOLOL MALEATE
     Indication: NORMAL TENSION GLAUCOMA
     Route: 065
  2. TAPROS [Suspect]
     Active Substance: TAFLUPROST
     Indication: NORMAL TENSION GLAUCOMA
     Route: 065
  3. XALATAN [Suspect]
     Active Substance: LATANOPROST
     Indication: NORMAL TENSION GLAUCOMA
     Dosage: 1 GTT, 1X/DAY
     Route: 047

REACTIONS (1)
  - Chloropsia [Recovered/Resolved]
